FAERS Safety Report 7936050 (Version 3)
Quarter: 2014Q2

REPORT INFORMATION
  Report Type: Report from Study
  Country: US (occurrence: US)
  Receive Date: 20110509
  Receipt Date: 20140619
  Transmission Date: 20141212
  Serious: Yes (Other)
  Sender: FDA-Public Use
  Company Number: US-ALEXION-A201000977

PATIENT
  Sex: 0

DRUGS (5)
  1. SOLIRIS [Suspect]
     Indication: PAROXYSMAL NOCTURNAL HAEMOGLOBINURIA
     Dosage: 900 MG, Q2W
     Route: 042
     Dates: start: 20080929
  2. VITAMINS NOS [Concomitant]
     Indication: VITAMIN SUPPLEMENTATION
     Dosage: UNK, QD
     Route: 065
     Dates: start: 20070821
  3. COUMADIN                           /00014802/ [Concomitant]
     Indication: ANTICOAGULANT THERAPY
     Dosage: 12 MG, TIW
     Route: 065
     Dates: start: 20080916
  4. COUMADIN                           /00014802/ [Concomitant]
     Dosage: 10 MG, FOUR TIMES A WEEK
     Route: 065
     Dates: start: 20080916
  5. ZINC [Concomitant]
     Indication: PRODUCT USED FOR UNKNOWN INDICATION
     Dosage: 50 MG, QD
     Route: 065
     Dates: start: 20130109

REACTIONS (5)
  - Basal cell carcinoma [Unknown]
  - Road traffic accident [Recovered/Resolved]
  - Injury [Recovered/Resolved]
  - Melanocytic naevus [Unknown]
  - Laceration [Recovered/Resolved]
